FAERS Safety Report 9074755 (Version 1)
Quarter: 2013Q1

REPORT INFORMATION
  Report Type: Spontaneous
  Country: US (occurrence: US)
  Receive Date: 20130129
  Receipt Date: 20130129
  Transmission Date: 20140127
  Serious: Yes (Hospitalization, Other)
  Sender: FDA-Public Use
  Company Number: US-009507513-1301USA012754

PATIENT
  Sex: Female

DRUGS (12)
  1. SINGULAIR [Suspect]
  2. IBUPROFEN [Suspect]
  3. PREDNISONE [Suspect]
  4. QUETIAPINE FUMARATE [Suspect]
  5. BUPROPION HYDROCHLORIDE [Suspect]
  6. RANITIDINE [Suspect]
  7. BUSPIRONE HYDROCHLORIDE [Suspect]
  8. TRAZODONE HYDROCHLORIDE [Suspect]
  9. ROSUVASTATIN CALCIUM [Suspect]
  10. LISINOPRIL [Suspect]
  11. RISPERIDONE [Suspect]
  12. METFORMIN [Suspect]

REACTIONS (1)
  - Suicide attempt [Unknown]
